FAERS Safety Report 25480501 (Version 7)
Quarter: 2025Q3

REPORT INFORMATION
  Report Type: Spontaneous
  Country: BR (occurrence: BR)
  Receive Date: 20250625
  Receipt Date: 20250919
  Transmission Date: 20251020
  Serious: No
  Sender: PFIZER
  Company Number: BR-PFIZER INC-PV202500073477

PATIENT
  Age: 9 Year
  Sex: Female

DRUGS (1)
  1. SOMATROGON [Suspect]
     Active Substance: SOMATROGON
     Indication: Growth disorder
     Dosage: 20 MG, WEEKLY
     Route: 030
     Dates: start: 20250408

REACTIONS (4)
  - Incorrect dose administered by device [Unknown]
  - Device delivery system issue [Unknown]
  - Device mechanical issue [Unknown]
  - Off label use [Unknown]

NARRATIVE: CASE EVENT DATE: 20250520
